FAERS Safety Report 13867858 (Version 1)
Quarter: 2017Q3

REPORT INFORMATION
  Report Type: Report from Study
  Country: ES (occurrence: ES)
  Receive Date: 20170814
  Receipt Date: 20170814
  Transmission Date: 20171127
  Serious: Yes (Hospitalization)
  Sender: FDA-Public Use
  Company Number: ES-IPSEN BIOPHARMACEUTICALS, INC.-2008-1740

PATIENT
  Age: 3 Year
  Sex: Male
  Weight: 7.5 kg

DRUGS (4)
  1. VALPROATE [Concomitant]
     Active Substance: VALPROIC ACID
     Indication: SEIZURE
     Route: 065
  2. INCRELEX [Suspect]
     Active Substance: MECASERMIN
     Route: 058
  3. INCRELEX [Suspect]
     Active Substance: MECASERMIN
     Indication: OFF LABEL USE
     Route: 058
     Dates: start: 20081111, end: 20081111
  4. INCRELEX [Suspect]
     Active Substance: MECASERMIN
     Indication: BLOOD GROWTH HORMONE ABNORMAL
     Route: 058
     Dates: start: 20081104, end: 20081110

REACTIONS (3)
  - Hypoglycaemia [Recovered/Resolved]
  - Blood growth hormone abnormal [Unknown]
  - Accidental overdose [Recovered/Resolved]

NARRATIVE: CASE EVENT DATE: 20081111
